FAERS Safety Report 24706986 (Version 1)
Quarter: 2024Q4

REPORT INFORMATION
  Report Type: Spontaneous
  Country: US (occurrence: US)
  Receive Date: 20241206
  Receipt Date: 20241206
  Transmission Date: 20250115
  Serious: Yes (Other)
  Sender: PFIZER
  Company Number: US-PFIZER INC-PV202400083996

PATIENT
  Age: 68 Year
  Sex: Female

DRUGS (5)
  1. TUKYSA [Suspect]
     Active Substance: TUCATINIB
     Dosage: 150 MG
  2. TUKYSA [Suspect]
     Active Substance: TUCATINIB
     Dosage: 50MG 5 TABLETS, TWICE A DAY
  3. TUKYSA [Suspect]
     Active Substance: TUCATINIB
     Dosage: 2 TABS PO (PER ORAL) BID (TWICE A DAY)
     Route: 048
  4. TUKYSA [Suspect]
     Active Substance: TUCATINIB
     Dosage: TWO 150MG TABLETS, ORALLY TWICE DAILY
     Route: 048
     Dates: start: 202404
  5. XELODA [Suspect]
     Active Substance: CAPECITABINE
     Dosage: UNK

REACTIONS (5)
  - Hyperbilirubinaemia [Not Recovered/Not Resolved]
  - Hypertransaminasaemia [Unknown]
  - Fatigue [Recovering/Resolving]
  - Arthralgia [Unknown]
  - Off label use [Unknown]
